FAERS Safety Report 17622185 (Version 1)
Quarter: 2020Q2

REPORT INFORMATION
  Report Type: Spontaneous
  Country: CA (occurrence: CA)
  Receive Date: 20200403
  Receipt Date: 20200403
  Transmission Date: 20200713
  Serious: Yes (Other)
  Sender: FDA-Public Use
  Company Number: CA-TEVA-2020-CA-1216831

PATIENT
  Age: 78 Year
  Sex: Male
  Weight: 62 kg

DRUGS (1)
  1. ATORVASTATIN CALCIUM. [Suspect]
     Active Substance: ATORVASTATIN CALCIUM
     Indication: PRODUCT USED FOR UNKNOWN INDICATION
     Route: 048

REACTIONS (3)
  - Vomiting [Unknown]
  - Dyspepsia [Unknown]
  - Nausea [Unknown]
